FAERS Safety Report 5735107-X (Version None)
Quarter: 2008Q2

REPORT INFORMATION
  Report Type: 
  Country: None (occurrence: None)
  Receive Date: 20080512
  Receipt Date: 20080428
  Transmission Date: 20081010
  Serious: Yes (Other)
  Sender: FDA-Public Use
  Company Number: FR-ASTRAZENECA-2008SE02346

PATIENT
  Age: 80 Year
  Sex: Female

DRUGS (4)
  1. KENZEN [Suspect]
     Indication: HYPERTENSION
     Route: 048
     Dates: end: 20080108
  2. KENZEN [Suspect]
     Route: 048
     Dates: start: 20080109
  3. ATENOLOL [Concomitant]
     Indication: MIGRAINE WITH AURA
     Route: 048
     Dates: start: 20080109
  4. LEVOTHYROXINE SODIUM [Concomitant]
     Indication: HYPOTHYROIDISM
     Route: 048

REACTIONS (3)
  - CREATININE RENAL CLEARANCE DECREASED [None]
  - DIARRHOEA [None]
  - URINARY TRACT INFECTION [None]
